FAERS Safety Report 4665956-0 (Version None)
Quarter: 2005Q2

REPORT INFORMATION
  Report Type: 
  Country: None (occurrence: None)
  Receive Date: 20050519
  Receipt Date: 20050512
  Transmission Date: 20051028
  Serious: Yes (Hospitalization, Other)
  Sender: FDA-Public Use
  Company Number: US-BRISTOL-MYERS SQUIBB COMPANY-12966958

PATIENT
  Age: 55 Year
  Sex: Male
  Weight: 82 kg

DRUGS (3)
  1. CETUXIMAB [Suspect]
     Indication: PANCREATIC CARCINOMA
     Dosage: INITIAL TX DATE: 27-APR-05. ADM ON DAYS 8, 15 AND 22.
     Route: 042
     Dates: start: 20050503, end: 20050503
  2. GEMCITABINE [Suspect]
     Indication: PANCREATIC CARCINOMA
     Dosage: INITIAL TX DATE: 27-APR-05. ADM WEEKLY X 4.
     Route: 042
     Dates: start: 20050503, end: 20050503
  3. CIPRO [Concomitant]
     Dates: end: 20050506

REACTIONS (10)
  - ABDOMINAL PAIN [None]
  - CHEST DISCOMFORT [None]
  - COUGH [None]
  - DEHYDRATION [None]
  - NAUSEA [None]
  - PAIN IN EXTREMITY [None]
  - PLATELET COUNT DECREASED [None]
  - PULMONARY CONGESTION [None]
  - PYREXIA [None]
  - WHITE BLOOD CELL COUNT DECREASED [None]
